FAERS Safety Report 4717196-4 (Version None)
Quarter: 2005Q3

REPORT INFORMATION
  Report Type: 
  Country: None (occurrence: None)
  Receive Date: 20050715
  Receipt Date: 20050705
  Transmission Date: 20060218
  Serious: Yes (Death)
  Sender: FDA-Public Use
  Company Number: JP-SHR-03-017647

PATIENT
  Age: 55 Year
  Sex: Male
  Weight: 60 kg

DRUGS (3)
  1. MAGNEVIST [Suspect]
     Indication: NUCLEAR MAGNETIC RESONANCE IMAGING
     Dosage: 13 ML, 1 DOSE, INTRAVENOUS
     Route: 042
     Dates: start: 20031119, end: 20031119
  2. KADIAN [Concomitant]
  3. MUCOSTA (REBAMIPIDE) [Concomitant]

REACTIONS (15)
  - ANAPHYLACTIC SHOCK [None]
  - ANXIETY [None]
  - CARDIAC ARREST [None]
  - COUGH [None]
  - DEHYDRATION [None]
  - DEPRESSED LEVEL OF CONSCIOUSNESS [None]
  - FLUSHING [None]
  - GASTROINTESTINAL HAEMORRHAGE [None]
  - HAEMODIALYSIS [None]
  - HEPATOSPLENOMEGALY [None]
  - HYPERHIDROSIS [None]
  - ISCHAEMIC HEPATITIS [None]
  - MULTI-ORGAN FAILURE [None]
  - SPUTUM ABNORMAL [None]
  - VENTRICULAR TACHYCARDIA [None]
